FAERS Safety Report 9118817 (Version 2)
Quarter: 2013Q1

REPORT INFORMATION
  Report Type: Spontaneous
  Country: IT (occurrence: IT)
  Receive Date: 20130226
  Receipt Date: 20130304
  Transmission Date: 20140127
  Serious: Yes (Life-Threatening)
  Sender: FDA-Public Use
  Company Number: PHHY2013IT017782

PATIENT
  Sex: Female

DRUGS (4)
  1. TEGRETOL [Suspect]
     Dosage: 30 DF, (POS. UNIT )
     Route: 048
     Dates: start: 20130118, end: 20130118
  2. LUMINALE [Suspect]
     Dosage: 40 DF, (POS. UNIT )
     Route: 048
  3. LANSOPRAZOLE [Concomitant]
     Route: 048
  4. ANAFRANIL [Concomitant]
     Route: 048

REACTIONS (3)
  - Cardiac failure [Unknown]
  - Trismus [Unknown]
  - Respiratory depression [Unknown]
